FAERS Safety Report 12633067 (Version 2)
Quarter: 2016Q3

REPORT INFORMATION
  Report Type: Spontaneous
  Country: US (occurrence: US)
  Receive Date: 20160808
  Receipt Date: 20160808
  Transmission Date: 20161109
  Serious: No
  Sender: FDA-Public Use
  Company Number: US-BEH-2016058338

PATIENT
  Sex: Female
  Weight: 85 kg

DRUGS (34)
  1. SERTRALINE [Concomitant]
     Active Substance: SERTRALINE HYDROCHLORIDE
  2. GABAPENTIN. [Concomitant]
     Active Substance: GABAPENTIN
  3. PYRIDIUM [Concomitant]
     Active Substance: PHENAZOPYRIDINE
  4. HIZENTRA [Suspect]
     Active Substance: HUMAN IMMUNOGLOBULIN G
     Indication: IMMUNODEFICIENCY COMMON VARIABLE
     Route: 058
     Dates: start: 20120426
  5. COREG [Concomitant]
     Active Substance: CARVEDILOL
  6. ZANTAC [Concomitant]
     Active Substance: RANITIDINE HYDROCHLORIDE
  7. LEVAQUIN [Concomitant]
     Active Substance: LEVOFLOXACIN
  8. ACETAZOLE [Concomitant]
  9. ELMIRON [Concomitant]
     Active Substance: PENTOSAN POLYSULFATE SODIUM
  10. MELOXICAM. [Concomitant]
     Active Substance: MELOXICAM
  11. METHOCARBAMOL. [Concomitant]
     Active Substance: METHOCARBAMOL
  12. MAGNESIUM [Concomitant]
     Active Substance: MAGNESIUM
  13. CEPHALEXIN. [Concomitant]
     Active Substance: CEPHALEXIN
  14. BACTRIM [Concomitant]
     Active Substance: SULFAMETHOXAZOLE\TRIMETHOPRIM
  15. EPIPEN [Concomitant]
     Active Substance: EPINEPHRINE
  16. SEROQUEL [Concomitant]
     Active Substance: QUETIAPINE FUMARATE
  17. CARAFATE [Concomitant]
     Active Substance: SUCRALFATE
  18. FERROUS SULFATE. [Concomitant]
     Active Substance: FERROUS SULFATE
  19. ACETAMINOPHEN. [Concomitant]
     Active Substance: ACETAMINOPHEN
  20. FOSAMAX [Concomitant]
     Active Substance: ALENDRONATE SODIUM
  21. LEVOCETIRIZINE [Concomitant]
     Active Substance: LEVOCETIRIZINE
  22. SPIRONOLOACTONE [Concomitant]
  23. VITAMIN B COMPLEX [Concomitant]
     Active Substance: CYANOCOBALAMIN\DEXPANTHENOL\NIACINAMIDE\PYRIDOXINE HYDROCHLORIDE\RIBOFLAVIN 5^-PHOSPHATE SODIUM\THIAMINE HYDROCHLORIDE\VITAMIN B COMPLEX
  24. VITAMIN D [Concomitant]
     Active Substance: CHOLECALCIFEROL
  25. VITAMINE [Concomitant]
  26. DIPHENHYDRAMINE. [Concomitant]
     Active Substance: DIPHENHYDRAMINE
  27. DICLONFENAC [Concomitant]
  28. CEFDINIR. [Concomitant]
     Active Substance: CEFDINIR
  29. LAMOTRIGINE. [Concomitant]
     Active Substance: LAMOTRIGINE
  30. HYDROCHLOROQUINE [Concomitant]
     Active Substance: HYDROXYCHLOROQUINE SULFATE
  31. ROCEPHIN [Concomitant]
     Active Substance: CEFTRIAXONE SODIUM
  32. NEXUIM [Concomitant]
  33. BYSTOLIC [Concomitant]
     Active Substance: NEBIVOLOL HYDROCHLORIDE
  34. LIDOCAINE/PRILOCAINE [Concomitant]
     Active Substance: LIDOCAINE\PRILOCAINE

REACTIONS (1)
  - Sinusitis [Unknown]
